FAERS Safety Report 21008718 (Version 6)
Quarter: 2024Q2

REPORT INFORMATION
  Report Type: Other
  Country: JP (occurrence: JP)
  Receive Date: 20220627
  Receipt Date: 20240517
  Transmission Date: 20240716
  Serious: Yes (Death, Other)
  Sender: FDA-Public Use
  Company Number: JP-CHUGAI-2022019102

PATIENT
  Age: 84 Year
  Sex: Male

DRUGS (8)
  1. TECENTRIQ [Suspect]
     Active Substance: ATEZOLIZUMAB
     Indication: Hepatocellular carcinoma
     Route: 065
     Dates: start: 20211014
  2. TECENTRIQ [Suspect]
     Active Substance: ATEZOLIZUMAB
     Route: 065
     Dates: start: 20220707, end: 20220728
  3. TECENTRIQ [Suspect]
     Active Substance: ATEZOLIZUMAB
     Route: 065
     Dates: start: 20220809, end: 20220809
  4. TECENTRIQ [Suspect]
     Active Substance: ATEZOLIZUMAB
     Route: 065
  5. TECENTRIQ [Suspect]
     Active Substance: ATEZOLIZUMAB
     Route: 065
     Dates: start: 20220526, end: 20220526
  6. TECENTRIQ [Suspect]
     Active Substance: ATEZOLIZUMAB
     Route: 065
     Dates: start: 20220616, end: 20220616
  7. AVASTIN [Suspect]
     Active Substance: BEVACIZUMAB
     Indication: Hepatocellular carcinoma
     Route: 065
     Dates: start: 20211014
  8. AVASTIN [Suspect]
     Active Substance: BEVACIZUMAB
     Route: 065
     Dates: end: 20220819

REACTIONS (9)
  - Pneumonia aspiration [Fatal]
  - Hyperthyroidism [Recovered/Resolved]
  - Decreased appetite [Unknown]
  - Malaise [Unknown]
  - Ascites [Not Recovered/Not Resolved]
  - Fatigue [Recovered/Resolved]
  - Decreased appetite [Recovered/Resolved]
  - Hypertension [Unknown]
  - Proteinuria [Unknown]

NARRATIVE: CASE EVENT DATE: 20211125
